FAERS Safety Report 14833474 (Version 1)
Quarter: 2018Q2

REPORT INFORMATION
  Report Type: Other
  Country: GB (occurrence: GB)
  Receive Date: 20180501
  Receipt Date: 20180501
  Transmission Date: 20180711
  Serious: Yes (Life-Threatening, Hospitalization)
  Sender: FDA-Public Use
  Company Number: GB-PCCINC-2018-PEL-003415

PATIENT

DRUGS (15)
  1. SEVOFLURANE 100% V/V VOLATILE LIQUID FOR INHALATION [Suspect]
     Active Substance: SEVOFLURANE
     Indication: ASTHMA
     Dosage: 8 %, UNK
  2. PREDNISOLONE. [Suspect]
     Active Substance: PREDNISOLONE
     Indication: ASTHMA
     Dosage: 30 MG, UNK
     Route: 065
  3. SALBUTAMOL [Suspect]
     Active Substance: ALBUTEROL
     Dosage: 250 U/G, UNK, BOLUS
     Route: 042
  4. IPRATROPIUM BROMIDE. [Suspect]
     Active Substance: IPRATROPIUM BROMIDE
     Indication: ASTHMA
     Dosage: 0.5 MG, UNK
     Route: 065
  5. MONTELUKAST [Suspect]
     Active Substance: MONTELUKAST SODIUM
     Indication: ASTHMA
     Dosage: UNK
     Route: 065
  6. THEOPHYLLINE [Suspect]
     Active Substance: THEOPHYLLINE ANHYDROUS
     Dosage: UNK
     Route: 065
  7. HYDROCORTISONE. [Suspect]
     Active Substance: HYDROCORTISONE
     Indication: ASTHMA
     Dosage: 100 MG, UNK
     Route: 042
  8. KETAMINE [Suspect]
     Active Substance: KETAMINE
     Indication: ASTHMA
     Dosage: UNK
     Route: 042
  9. SALBUTAMOL [Suspect]
     Active Substance: ALBUTEROL
     Dosage: 12.3 MG, UNK
     Route: 042
  10. MAGNESIUM SULFATE. [Suspect]
     Active Substance: MAGNESIUM SULFATE
     Indication: ASTHMA
     Dosage: 2 G, UNK
     Route: 042
  11. PREDNISOLONE. [Suspect]
     Active Substance: PREDNISOLONE
     Dosage: 30 MG, UNK
     Route: 065
  12. EPINEPHRINE. [Suspect]
     Active Substance: EPINEPHRINE
     Indication: ASTHMA
     Dosage: 350 ?G, UNK
     Route: 065
  13. MONTELUKAST [Suspect]
     Active Substance: MONTELUKAST SODIUM
     Dosage: UNK
     Route: 065
  14. THEOPHYLLINE [Suspect]
     Active Substance: THEOPHYLLINE ANHYDROUS
     Indication: ASTHMA
     Dosage: UNK
     Route: 065
  15. SALBUTAMOL [Suspect]
     Active Substance: ALBUTEROL
     Indication: ASTHMA
     Dosage: 15 MG, UNK
     Route: 065

REACTIONS (18)
  - Asthma [Recovering/Resolving]
  - Off label use [Unknown]
  - Respiratory rate increased [Recovering/Resolving]
  - Blood pH decreased [Recovering/Resolving]
  - Respiratory acidosis [Recovering/Resolving]
  - Blood bicarbonate decreased [Recovering/Resolving]
  - Hypercapnia [Recovering/Resolving]
  - Cyanosis [Recovering/Resolving]
  - PO2 decreased [Recovering/Resolving]
  - Dyspnoea [Recovering/Resolving]
  - Bronchospasm [Recovering/Resolving]
  - Blood lactic acid increased [Recovering/Resolving]
  - Lung hyperinflation [Recovering/Resolving]
  - PCO2 increased [Recovering/Resolving]
  - Oxygen saturation decreased [Recovering/Resolving]
  - Airway peak pressure increased [Recovering/Resolving]
  - Wheezing [Recovering/Resolving]
  - Drug ineffective [Unknown]
